FAERS Safety Report 4748651-9 (Version None)
Quarter: 2005Q3

REPORT INFORMATION
  Report Type: 
  Country: None (occurrence: None)
  Receive Date: 20050817
  Receipt Date: 20050804
  Transmission Date: 20060218
  Serious: Yes (Other)
  Sender: FDA-Public Use
  Company Number: 2005110821

PATIENT
  Sex: Female
  Weight: 185 kg

DRUGS (2)
  1. DETROL [Suspect]
     Indication: INCONTINENCE
     Dosage: 1 D
     Dates: start: 20000101, end: 20030101
  2. ALL OTHER THERAPEUTIC PRODUCTS (ALL OTHER THERAPEUTIC PRODUCTS) [Concomitant]

REACTIONS (5)
  - BLADDER OPERATION [None]
  - DRY MOUTH [None]
  - MALAISE [None]
  - NAUSEA [None]
  - VOMITING [None]
